FAERS Safety Report 6400747-1 (Version None)
Quarter: 2009Q4

REPORT INFORMATION
  Report Type: 
  Country: None (occurrence: None)
  Receive Date: 20091014
  Receipt Date: 20090930
  Transmission Date: 20100525
  Serious: Yes (Other)
  Sender: FDA-Public Use
  Company Number: CH-GENENTECH-292142

PATIENT
  Sex: Female

DRUGS (3)
  1. XOLAIR [Suspect]
     Indication: BRONCHOPULMONARY ASPERGILLOSIS
     Dosage: 3 AMP, UNK
     Route: 058
     Dates: start: 20081001, end: 20090901
  2. XOLAIR [Suspect]
     Dosage: 5 AMP, UNK
     Route: 058
  3. PREDNISONE TAB [Suspect]
     Indication: BRONCHOPULMONARY ASPERGILLOSIS
     Dosage: UNK

REACTIONS (1)
  - PARAESTHESIA [None]
